FAERS Safety Report 13181420 (Version 2)
Quarter: 2017Q1

REPORT INFORMATION
  Report Type: Spontaneous
  Country: FI (occurrence: FI)
  Receive Date: 20170202
  Receipt Date: 20170210
  Transmission Date: 20170428
  Serious: Yes (Disabling)
  Sender: FDA-Public Use
  Company Number: FI-INDIVIOR LIMITED-INDV-098261-2017

PATIENT
  Age: 40 Year
  Sex: Male

DRUGS (3)
  1. SUBOXONE [Suspect]
     Active Substance: BUPRENORPHINE HYDROCHLORIDE\NALOXONE HYDROCHLORIDE
     Indication: DRUG DEPENDENCE
     Dosage: 28 MG ON MONDAYS, 28 MG ON WEDNESDAYS AND 42 MG ON FRIDAYS
     Route: 065
     Dates: start: 20140514
  2. AMPHETAMINE [Suspect]
     Active Substance: AMPHETAMINE
     Indication: PRODUCT USED FOR UNKNOWN INDICATION
     Dosage: UNK
     Route: 065
  3. SUBUTEX [Suspect]
     Active Substance: BUPRENORPHINE HYDROCHLORIDE
     Indication: PRODUCT USED FOR UNKNOWN INDICATION
     Dosage: UNK
     Route: 065
     Dates: start: 201405

REACTIONS (9)
  - Abdominal discomfort [Not Recovered/Not Resolved]
  - Drug abuse [Unknown]
  - Headache [Not Recovered/Not Resolved]
  - Tooth loss [Not Recovered/Not Resolved]
  - Drug screen positive [Unknown]
  - Therapy cessation [Recovered/Resolved]
  - Sleep disorder [Not Recovered/Not Resolved]
  - Somnolence [Not Recovered/Not Resolved]
  - Substance abuse [Unknown]

NARRATIVE: CASE EVENT DATE: 20150901
